FAERS Safety Report 17942077 (Version 2)
Quarter: 2020Q3

REPORT INFORMATION
  Report Type: Spontaneous
  Country: US (occurrence: US)
  Receive Date: 20200625
  Receipt Date: 20200708
  Transmission Date: 20201103
  Serious: No
  Sender: FDA-Public Use
  Company Number: US-SA-2020SA160992

PATIENT

DRUGS (8)
  1. VITAMIN D3 [Concomitant]
     Active Substance: CHOLECALCIFEROL
  2. DUPIXENT [Suspect]
     Active Substance: DUPILUMAB
     Indication: DERMATITIS ATOPIC
     Dosage: 300 MG, QOW
     Route: 058
     Dates: start: 202005
  3. DUPIXENT [Suspect]
     Active Substance: DUPILUMAB
     Indication: ECZEMA
  4. PROBIOTIC 10 [Concomitant]
     Active Substance: DIETARY SUPPLEMENT\PROBIOTICS
  5. TACROLIMUS. [Concomitant]
     Active Substance: TACROLIMUS
  6. TRIAMCINOLONE ACETONIDE. [Concomitant]
     Active Substance: TRIAMCINOLONE ACETONIDE
  7. IRON + VITAMIN C [Concomitant]
     Active Substance: ASCORBIC ACID\IRON
  8. ZINC. [Concomitant]
     Active Substance: ZINC

REACTIONS (10)
  - Rash [Unknown]
  - Injection site erythema [Unknown]
  - Conjunctivitis [Recovering/Resolving]
  - Injection site induration [Unknown]
  - Eye pruritus [Recovering/Resolving]
  - Therapeutic response decreased [Unknown]
  - Injection site pruritus [Unknown]
  - Eye discharge [Recovering/Resolving]
  - Eye inflammation [Recovering/Resolving]
  - Hypersensitivity [Unknown]

NARRATIVE: CASE EVENT DATE: 2020
